FAERS Safety Report 13733253 (Version 1)
Quarter: 2017Q3

REPORT INFORMATION
  Report Type: Spontaneous
  Country: US (occurrence: US)
  Receive Date: 20170707
  Receipt Date: 20170707
  Transmission Date: 20171127
  Serious: No
  Sender: FDA-Public Use
  Company Number: US-ROCHE-1561987

PATIENT
  Sex: Male

DRUGS (1)
  1. GAZYVA [Suspect]
     Active Substance: OBINUTUZUMAB
     Indication: CHRONIC LYMPHOCYTIC LEUKAEMIA
     Route: 065
     Dates: start: 201401

REACTIONS (7)
  - Unevaluable event [Unknown]
  - Memory impairment [Unknown]
  - Platelet count decreased [Unknown]
  - Feeling abnormal [Unknown]
  - Drug hypersensitivity [Unknown]
  - Rash [Unknown]
  - Tremor [Unknown]

NARRATIVE: CASE EVENT DATE: 201401
